FAERS Safety Report 20237163 (Version 1)
Quarter: 2021Q4

REPORT INFORMATION
  Report Type: Spontaneous
  Country: US (occurrence: US)
  Receive Date: 20211228
  Receipt Date: 20211228
  Transmission Date: 20220304
  Serious: Yes (Hospitalization, Other)
  Sender: FDA-Public Use
  Company Number: US-GLAXOSMITHKLINE-US2021GSK259065

PATIENT
  Age: 77 Year
  Sex: Female

DRUGS (1)
  1. VALACYCLOVIR [Suspect]
     Active Substance: VALACYCLOVIR HYDROCHLORIDE
     Indication: Herpes zoster
     Dosage: 1000 MG, TID

REACTIONS (13)
  - Neurotoxicity [Recovered/Resolved]
  - Toxicity to various agents [Recovered/Resolved]
  - Dementia [Recovered/Resolved]
  - Confusional state [Recovered/Resolved]
  - Somnolence [Recovered/Resolved]
  - Restlessness [Recovered/Resolved]
  - Lethargy [Recovered/Resolved]
  - Dysarthria [Recovered/Resolved]
  - Hallucination, visual [Recovered/Resolved]
  - Tremor [Recovered/Resolved]
  - Rash vesicular [Recovered/Resolved]
  - Scab [Recovered/Resolved]
  - Overdose [Unknown]
